FAERS Safety Report 13674315 (Version 1)
Quarter: 2017Q2

REPORT INFORMATION
  Report Type: Spontaneous
  Country: CH (occurrence: CH)
  Receive Date: 20170621
  Receipt Date: 20170621
  Transmission Date: 20170830
  Serious: Yes (Death)
  Sender: FDA-Public Use
  Company Number: CH-PURDUE PHARMA-GBR-2017-0046049

PATIENT
  Age: 51 Year
  Sex: Male
  Weight: 110 kg

DRUGS (5)
  1. MORPHIN HCL SINTETICA [Suspect]
     Active Substance: MORPHINE HYDROCHLORIDE
     Indication: DYSPNOEA
  2. METHADON HCL [Suspect]
     Active Substance: METHADONE HYDROCHLORIDE
     Indication: PAIN
     Dosage: 2.5 MG, BID
     Route: 042
     Dates: start: 20170519, end: 20170521
  3. MORPHIN HCL SINTETICA [Suspect]
     Active Substance: MORPHINE HYDROCHLORIDE
     Indication: PAIN
     Dosage: 12-48 MG (TITRATED)
     Route: 042
     Dates: start: 20170519, end: 20170521
  4. MST CONTINUS [Suspect]
     Active Substance: MORPHINE SULFATE
     Indication: PAIN
     Dosage: UNK (20MG STRENGTH)
     Route: 048
     Dates: start: 20170517, end: 20170518
  5. MST CONTINUS [Suspect]
     Active Substance: MORPHINE SULFATE
     Indication: DYSPNOEA

REACTIONS (6)
  - Pupils unequal [Fatal]
  - Hyperventilation [Fatal]
  - Disorientation [Fatal]
  - Tachypnoea [Fatal]
  - Anaplastic thyroid cancer [Fatal]
  - Somnolence [Fatal]

NARRATIVE: CASE EVENT DATE: 20170521
